FAERS Safety Report 22288990 (Version 1)
Quarter: 2023Q2

REPORT INFORMATION
  Report Type: Spontaneous
  Country: US (occurrence: US)
  Receive Date: 20230505
  Receipt Date: 20230505
  Transmission Date: 20230721
  Serious: No
  Sender: FDA-Public Use
  Company Number: US-BRISTOL-MYERS SQUIBB COMPANY-2023-064280

PATIENT
  Age: 86 Year
  Sex: Male
  Weight: 79.7 kg

DRUGS (1)
  1. REVLIMID [Suspect]
     Active Substance: LENALIDOMIDE
     Indication: Plasma cell myeloma
     Dosage: DOSE : 10 MG;     FREQ : ONE DAILY FOR 21 DAYS AND 7 DAYS OFF
     Route: 048
     Dates: start: 20220218, end: 20230502

REACTIONS (2)
  - Diarrhoea [Unknown]
  - Blood potassium decreased [Unknown]

NARRATIVE: CASE EVENT DATE: 20230502
